FAERS Safety Report 14741984 (Version 2)
Quarter: 2018Q3

REPORT INFORMATION
  Report Type: Spontaneous
  Country: FR (occurrence: FR)
  Receive Date: 20180410
  Receipt Date: 20180904
  Transmission Date: 20181010
  Serious: Yes (Other)
  Sender: FDA-Public Use
  Company Number: FR-ROCHE-2101710

PATIENT
  Age: 65 Year
  Sex: Male

DRUGS (2)
  1. COTELLIC [Suspect]
     Active Substance: COBIMETINIB
     Indication: MALIGNANT MELANOMA
     Dosage: MOST RECENT DOSE ADMINISTERED ON 26/APR/2017
     Route: 048
     Dates: start: 20170301
  2. ZELBORAF [Suspect]
     Active Substance: VEMURAFENIB
     Indication: MALIGNANT MELANOMA
     Route: 048
     Dates: start: 20170322, end: 201707

REACTIONS (1)
  - Iridocyclitis [Recovering/Resolving]

NARRATIVE: CASE EVENT DATE: 20170412
